FAERS Safety Report 5214338-1 (Version None)
Quarter: 2007Q1

REPORT INFORMATION
  Report Type: 
  Country: None (occurrence: None)
  Receive Date: 20070122
  Receipt Date: 20070112
  Transmission Date: 20070707
  Serious: Yes (Hospitalization, Other)
  Sender: FDA-Public Use
  Company Number: DE-AMGEN-UK201653

PATIENT
  Sex: Female

DRUGS (12)
  1. ARANESP [Suspect]
     Indication: RENAL FAILURE CHRONIC
     Route: 058
     Dates: start: 20040809
  2. AMARYL [Concomitant]
     Route: 048
     Dates: start: 20040714
  3. PANTOZOL [Concomitant]
     Route: 048
     Dates: start: 20040714
  4. FUROSEMIDE [Concomitant]
     Route: 048
     Dates: start: 20040830
  5. TRAMADOL HCL [Concomitant]
     Route: 048
     Dates: start: 20041015
  6. NOVAMINSULFON-RATIOPHARM [Concomitant]
     Route: 048
     Dates: start: 20041015
  7. FERROUS SULFATE TAB [Concomitant]
     Route: 048
     Dates: start: 20051004
  8. FOLIC ACID [Concomitant]
     Route: 048
     Dates: start: 20050808
  9. COLECALCIFEROL [Concomitant]
     Route: 048
     Dates: start: 20051101
  10. VITARENAL [Concomitant]
     Route: 048
  11. EUTHYROX [Concomitant]
     Route: 048
  12. SODIUM BICARBONATE [Concomitant]
     Route: 048

REACTIONS (10)
  - ASCITES [None]
  - CARDIAC DISORDER [None]
  - GASTROINTESTINAL HAEMORRHAGE [None]
  - HEPATIC CIRRHOSIS [None]
  - HIATUS HERNIA [None]
  - IRON DEFICIENCY ANAEMIA [None]
  - LEUKOPENIA [None]
  - PANCYTOPENIA [None]
  - PLEURAL EFFUSION [None]
  - RENAL DISORDER [None]
